FAERS Safety Report 20570332 (Version 3)
Quarter: 2022Q2

REPORT INFORMATION
  Report Type: Report from Study
  Country: US (occurrence: US)
  Receive Date: 20220309
  Receipt Date: 20220621
  Transmission Date: 20220720
  Serious: No
  Sender: FDA-Public Use
  Company Number: US-BIOVITRUM-2022US03321

PATIENT
  Age: 58 Year
  Sex: Female

DRUGS (2)
  1. KINERET [Suspect]
     Active Substance: ANAKINRA
     Indication: Polychondritis
     Route: 058
     Dates: start: 20220218
  2. KINERET [Suspect]
     Active Substance: ANAKINRA

REACTIONS (2)
  - Abscess [Unknown]
  - Off label use [Not Recovered/Not Resolved]

NARRATIVE: CASE EVENT DATE: 20220218
